FAERS Safety Report 15094852 (Version 1)
Quarter: 2018Q3

REPORT INFORMATION
  Report Type: Spontaneous
  Country: US (occurrence: US)
  Receive Date: 20180701
  Receipt Date: 20180701
  Transmission Date: 20181010
  Serious: Yes (Other)
  Sender: FDA-Public Use
  Company Number: US-BRISTOL-MYERS SQUIBB COMPANY-BMS-2018-056984

PATIENT
  Sex: Male
  Weight: 71.8 kg

DRUGS (1)
  1. YERVOY [Suspect]
     Active Substance: IPILIMUMAB
     Indication: MALIGNANT MELANOMA
     Dosage: 700 MG, Q3MO
     Route: 042
     Dates: start: 20171006, end: 20180323

REACTIONS (2)
  - Malignant neoplasm progression [Unknown]
  - Inappropriate schedule of drug administration [Unknown]
